FAERS Safety Report 7490131-4 (Version None)
Quarter: 2011Q2

REPORT INFORMATION
  Report Type: 
  Country: None (occurrence: None)
  Receive Date: 20110519
  Receipt Date: 20110513
  Transmission Date: 20111010
  Serious: No
  Sender: FDA-Public Use
  Company Number: US-PFIZER INC-2010182423

PATIENT
  Sex: Male

DRUGS (1)
  1. VERAPAMIL HCL [Suspect]
     Dosage: UNK
     Dates: start: 20101230

REACTIONS (1)
  - DRUG INEFFECTIVE [None]
